FAERS Safety Report 5120608-8 (Version None)
Quarter: 2006Q3

REPORT INFORMATION
  Report Type: 
  Country: None (occurrence: None)
  Receive Date: 20060928
  Receipt Date: 20060922
  Transmission Date: 20061208
  Serious: No
  Sender: FDA-Public Use
  Company Number: 2006-05079

PATIENT

DRUGS (1)
  1. INFED [Suspect]
     Indication: IRON DEFICIENCY ANAEMIA
     Dosage: 500 MG, 1/WEEK X 2 DOSES, INTRAVENOUS
     Route: 042
     Dates: start: 20000101, end: 20000101

REACTIONS (1)
  - PERITONITIS [None]
